FAERS Safety Report 8450478-1 (Version None)
Quarter: 2012Q2

REPORT INFORMATION
  Report Type: 
  Country: None (occurrence: None)
  Receive Date: 20120620
  Receipt Date: 20120618
  Transmission Date: 20120825
  Serious: Yes (Death)
  Sender: FDA-Public Use
  Company Number: MA-ABBOTT-12P-110-0943496-00

PATIENT
  Age: 26 Year
  Sex: Male
  Weight: 52 kg

DRUGS (10)
  1. HUMIRA [Suspect]
     Indication: CROHN'S DISEASE
     Dosage: WEEK 0
     Route: 058
     Dates: start: 20120210
  2. VENOFER [Concomitant]
     Indication: PRODUCT USED FOR UNKNOWN INDICATION
     Dosage: 2 AMP
     Dates: start: 20120101, end: 20120301
  3. CIPRAINE [Concomitant]
     Indication: PRODUCT USED FOR UNKNOWN INDICATION
     Dosage: 500/12 HOUR
     Route: 042
     Dates: start: 20120101, end: 20120201
  4. HUMIRA [Suspect]
     Dosage: WEEK 2
     Route: 058
  5. ALBUMIN (HUMAN) [Concomitant]
     Indication: PRODUCT USED FOR UNKNOWN INDICATION
     Dosage: 1CPS/24 HOURS
     Dates: start: 20120101, end: 20120301
  6. VITAMIN B-12 [Concomitant]
     Indication: PRODUCT USED FOR UNKNOWN INDICATION
     Dosage: 500 UI/ IV
     Dates: start: 20120101, end: 20120301
  7. SYNTHROID [Concomitant]
     Indication: PRODUCT USED FOR UNKNOWN INDICATION
  8. FLAGYL [Concomitant]
     Indication: INFECTION
     Dosage: 500/12 HOUR
     Route: 042
     Dates: start: 20120101, end: 20120201
  9. ANTIBIOTIC [Concomitant]
     Indication: PRODUCT USED FOR UNKNOWN INDICATION
  10. HUMIRA [Suspect]
     Dosage: WEEK 4
     Route: 058
     Dates: end: 20120330

REACTIONS (4)
  - ANAEMIA [None]
  - THROMBOCYTOPENIA [None]
  - INTESTINAL HAEMORRHAGE [None]
  - MALABSORPTION [None]
